FAERS Safety Report 8018188-2 (Version None)
Quarter: 2012Q1

REPORT INFORMATION
  Report Type: 
  Country: None (occurrence: None)
  Receive Date: 20120103
  Receipt Date: 20111227
  Transmission Date: 20120608
  Serious: Yes (Hospitalization)
  Sender: FDA-Public Use
  Company Number: JP-BRISTOL-MYERS SQUIBB COMPANY-16320053

PATIENT
  Age: 48 Year
  Sex: Male

DRUGS (9)
  1. CRESTOR [Concomitant]
     Route: 048
  2. AMARYL [Concomitant]
  3. IMIDAPRIL HCL [Concomitant]
  4. METFORMIN HCL [Concomitant]
  5. ASPIRIN [Concomitant]
  6. METFORMIN HCL [Suspect]
     Indication: DIABETES MELLITUS
     Route: 048
  7. EVIPROSTAT [Concomitant]
  8. FAMOTIDINE [Concomitant]
  9. PLETAL [Concomitant]

REACTIONS (2)
  - PULMONARY OEDEMA [None]
  - DIARRHOEA [None]
